FAERS Safety Report 9601605 (Version 7)
Quarter: 2015Q4

REPORT INFORMATION
  Report Type: Report from Study
  Country: CA (occurrence: CA)
  Receive Date: 20131007
  Receipt Date: 20151202
  Transmission Date: 20160305
  Serious: Yes (Hospitalization, Other)
  Sender: FDA-Public Use
  Company Number: CA-ROCHE-1189032

PATIENT
  Age: 64 Year
  Sex: Female
  Weight: 73 kg

DRUGS (7)
  1. METFORMIN [Concomitant]
     Active Substance: METFORMIN HYDROCHLORIDE
  2. ACTEMRA [Suspect]
     Active Substance: TOCILIZUMAB
     Indication: RHEUMATOID ARTHRITIS
     Route: 042
     Dates: start: 20121016
  3. ACTEMRA [Suspect]
     Active Substance: TOCILIZUMAB
     Route: 042
     Dates: start: 20130528
  4. ASA [Concomitant]
     Active Substance: ASPIRIN
  5. FOLIC ACID. [Concomitant]
     Active Substance: FOLIC ACID
     Route: 065
  6. LIPITOR [Concomitant]
     Active Substance: ATORVASTATIN CALCIUM
  7. METHOTREXATE [Concomitant]
     Active Substance: METHOTREXATE

REACTIONS (7)
  - Localised infection [Unknown]
  - Loss of consciousness [Recovering/Resolving]
  - Wound infection [Unknown]
  - Ocular hyperaemia [Not Recovered/Not Resolved]
  - Cataract [Unknown]
  - Gallbladder disorder [Unknown]
  - Arterial rupture [Recovering/Resolving]

NARRATIVE: CASE EVENT DATE: 20130915
